FAERS Safety Report 7179561-8 (Version None)
Quarter: 2010Q4

REPORT INFORMATION
  Report Type: 
  Country: None (occurrence: None)
  Receive Date: 20101221
  Receipt Date: 20100203
  Transmission Date: 20110411
  Serious: Yes (Life-Threatening)
  Sender: FDA-Public Use
  Company Number: HK-ROCHE-683477

PATIENT
  Age: 20 Month
  Sex: Female

DRUGS (2)
  1. TAMIFLU [Suspect]
     Route: 065
     Dates: start: 20100129
  2. ANTIBIOTIC NOS [Concomitant]
     Dates: start: 20100129

REACTIONS (2)
  - DRUG INEFFECTIVE [None]
  - DYSPNOEA [None]
